FAERS Safety Report 22638293 (Version 1)
Quarter: 2023Q2

REPORT INFORMATION
  Report Type: Report from Study
  Country: CA (occurrence: CA)
  Receive Date: 20230626
  Receipt Date: 20230626
  Transmission Date: 20230722
  Serious: Yes (Other)
  Sender: FDA-Public Use
  Company Number: CA-002147023-NVSC2022CA219038

PATIENT
  Age: 58 Year
  Sex: Female

DRUGS (2)
  1. HYRIMOZ [Suspect]
     Active Substance: ADALIMUMAB-ADAZ
     Indication: Hidradenitis
     Dosage: 40 MG
     Route: 058
     Dates: start: 20220122
  2. CLINDAMYCIN [Concomitant]
     Active Substance: CLINDAMYCIN
     Indication: Product used for unknown indication
     Dosage: UNK, BID
     Route: 065

REACTIONS (7)
  - Diabetes mellitus [Unknown]
  - Acne [Unknown]
  - Condition aggravated [Unknown]
  - Abscess [Unknown]
  - Hidradenitis [Unknown]
  - Skin lesion [Unknown]
  - Skin weeping [Unknown]

NARRATIVE: CASE EVENT DATE: 20220923
